FAERS Safety Report 17772000 (Version 1)
Quarter: 2020Q2

REPORT INFORMATION
  Report Type: Spontaneous
  Country: KW (occurrence: KW)
  Receive Date: 20200512
  Receipt Date: 20200512
  Transmission Date: 20200714
  Serious: Yes (Death)
  Sender: FDA-Public Use
  Company Number: KW-PFIZER INC-2020080581

PATIENT
  Age: 69 Year
  Sex: Female

DRUGS (1)
  1. IBRANCE [Suspect]
     Active Substance: PALBOCICLIB
     Dosage: 100 MG
     Route: 048
     Dates: start: 20191010, end: 202004

REACTIONS (2)
  - Renal disorder [Unknown]
  - Death [Fatal]

NARRATIVE: CASE EVENT DATE: 20200415
